FAERS Safety Report 6190025-0 (Version None)
Quarter: 2009Q2

REPORT INFORMATION
  Report Type: 
  Country: None (occurrence: None)
  Receive Date: 20090514
  Receipt Date: 20090505
  Transmission Date: 20091009
  Serious: Yes (Other)
  Sender: FDA-Public Use
  Company Number: US-AVENTIS-200913925US

PATIENT
  Sex: Female
  Weight: 81.65 kg

DRUGS (7)
  1. KETEK [Suspect]
     Dosage: DOSE: 2 TABLETS
     Dates: start: 20050131
  2. ZITHROMAX [Suspect]
     Dosage: DOSE: UNK
     Dates: start: 20050126, end: 20050130
  3. ALLEGRA [Concomitant]
     Dosage: DOSE: UNK
  4. ESTRATEST [Concomitant]
     Dosage: DOSE: UNK
  5. IBUPROFEN [Concomitant]
     Dosage: DOSE: UNK
  6. ALLERGY INJECTIONS [Concomitant]
     Dosage: DOSE: UNK
  7. PHENERGAN [Concomitant]
     Indication: NAUSEA
     Dates: start: 20050131

REACTIONS (10)
  - ASPARTATE AMINOTRANSFERASE INCREASED [None]
  - BILIRUBIN CONJUGATED INCREASED [None]
  - BLOOD ALKALINE PHOSPHATASE INCREASED [None]
  - BLOOD BILIRUBIN INCREASED [None]
  - CHROMATURIA [None]
  - HEPATITIS [None]
  - JAUNDICE [None]
  - NAUSEA [None]
  - SMOOTH MUSCLE ANTIBODY POSITIVE [None]
  - VOMITING [None]
